FAERS Safety Report 24976947 (Version 2)
Quarter: 2025Q1

REPORT INFORMATION
  Report Type: Spontaneous
  Country: US (occurrence: US)
  Receive Date: 20250217
  Receipt Date: 20250313
  Transmission Date: 20250409
  Serious: Yes (Other)
  Sender: BAYER HEALTHCARE PHARMACEUTICALS INC.
  Company Number: US-BAYER-2025A019861

PATIENT
  Sex: Male

DRUGS (1)
  1. VITRAKVI [Suspect]
     Active Substance: LAROTRECTINIB
     Indication: Neuroendocrine carcinoma metastatic

REACTIONS (4)
  - Biliary colic [None]
  - Nausea [None]
  - Vomiting [None]
  - Product physical issue [None]

NARRATIVE: CASE EVENT DATE: 20250108
